FAERS Safety Report 8149568-2 (Version None)
Quarter: 2012Q1

REPORT INFORMATION
  Report Type: 
  Country: None (occurrence: None)
  Receive Date: 20120218
  Receipt Date: 20111102
  Transmission Date: 20120608
  Serious: No
  Sender: FDA-Public Use
  Company Number: US-ALLERGAN-1103982US

PATIENT
  Age: 56 Year
  Sex: Female
  Weight: 58.957 kg

DRUGS (1)
  1. BOTOX COSMETIC [Suspect]
     Indication: SKIN WRINKLING
     Dosage: UNK
     Dates: start: 20110208, end: 20110208

REACTIONS (6)
  - VISION BLURRED [None]
  - EYE PAIN [None]
  - VISUAL FIELD DEFECT [None]
  - EYELID PTOSIS [None]
  - VISUAL IMPAIRMENT [None]
  - DRY EYE [None]
